FAERS Safety Report 7438360-X (Version None)
Quarter: 2011Q2

REPORT INFORMATION
  Report Type: 
  Country: None (occurrence: None)
  Receive Date: 20110426
  Receipt Date: 20110403
  Transmission Date: 20111010
  Serious: Yes (Other)
  Sender: FDA-Public Use
  Company Number: US-BAYER-201039666NA

PATIENT
  Age: 22 Year
  Sex: Female
  Weight: 44.898 kg

DRUGS (13)
  1. PROZAC [Concomitant]
  2. PHENAZOPYRIDINE HCL TAB [Concomitant]
  3. NITROFURANTOIN [Concomitant]
     Dosage: 100 MG, UNK
     Route: 048
  4. YASMIN [Suspect]
     Indication: PRODUCT USED FOR UNKNOWN INDICATION
  5. BENTYL [Concomitant]
  6. PHENERGAN HCL [Concomitant]
  7. ALPRAZOLAM [Concomitant]
     Dosage: 0.25 MG, UNK
     Route: 048
  8. PROCTOFOAM [PRAMOCAINE HYDROCHLORIDE] [Concomitant]
  9. XANAX [Concomitant]
  10. HYDROCORTISONE [Concomitant]
  11. DONNATAL [Concomitant]
     Dosage: UNK
  12. LEXAPRO [Concomitant]
  13. CARAFATE [Concomitant]

REACTIONS (3)
  - CHOLECYSTITIS [None]
  - GALLBLADDER NON-FUNCTIONING [None]
  - ABDOMINAL INJURY [None]
